FAERS Safety Report 17827601 (Version 2)
Quarter: 2020Q2

REPORT INFORMATION
  Report Type: Spontaneous
  Country: DE (occurrence: DE)
  Receive Date: 20200527
  Receipt Date: 20200605
  Transmission Date: 20200714
  Serious: Yes (Other)
  Sender: FDA-Public Use
  Company Number: DE-LUPIN PHARMACEUTICALS INC.-2020-02392

PATIENT
  Age: 34 Year
  Sex: Male

DRUGS (11)
  1. GABAPENTIN. [Concomitant]
     Active Substance: GABAPENTIN
     Indication: PRODUCT USED FOR UNKNOWN INDICATION
     Dosage: 600 MILLIGRAM, QD
     Route: 048
     Dates: start: 2014
  2. OXAZEPAM. [Interacting]
     Active Substance: OXAZEPAM
     Indication: SUBSTANCE DEPENDENCE
     Dosage: 2.5 MILLIGRAM, QD
     Route: 048
     Dates: start: 20150605
  3. OXAZEPAM. [Interacting]
     Active Substance: OXAZEPAM
     Dosage: 20 MILLIGRAM, QD
     Route: 048
     Dates: start: 20150529, end: 20150601
  4. QUETIAPINE FUMARATE. [Interacting]
     Active Substance: QUETIAPINE FUMARATE
     Dosage: 100 MILLIGRAM, QD
     Route: 048
     Dates: start: 20150601, end: 20150605
  5. OXAZEPAM. [Interacting]
     Active Substance: OXAZEPAM
     Dosage: 10 MILLIGRAM, QD
     Route: 048
     Dates: start: 20150602, end: 20150603
  6. ZUCLOPENTHIXOL [Interacting]
     Active Substance: ZUCLOPENTHIXOL
     Indication: SUBSTANCE DEPENDENCE
     Dosage: 100 MILLIGRAM, QD
     Route: 048
     Dates: start: 20150604, end: 20150605
  7. MIRTAZAPINE. [Concomitant]
     Active Substance: MIRTAZAPINE
     Indication: PRODUCT USED FOR UNKNOWN INDICATION
     Dosage: 7.5 MILLIGRAM, QD
     Route: 048
     Dates: start: 20150528, end: 20150605
  8. OXAZEPAM. [Interacting]
     Active Substance: OXAZEPAM
     Dosage: 5 MILLIGRAM, QD
     Route: 048
     Dates: start: 20150604
  9. QUETIAPINE FUMARATE. [Suspect]
     Active Substance: QUETIAPINE FUMARATE
     Indication: SUBSTANCE DEPENDENCE
     Dosage: 50 MILLIGRAM, QD
     Route: 048
     Dates: start: 20150529, end: 20150531
  10. METHADONE [Concomitant]
     Active Substance: METHADONE HYDROCHLORIDE
     Indication: SUBSTANCE DEPENDENCE
     Dosage: 4 MILLILITER, QD
     Route: 048
     Dates: start: 2014
  11. VALPROATE SODIUM. [Interacting]
     Active Substance: VALPROATE SODIUM
     Indication: PRODUCT USED FOR UNKNOWN INDICATION
     Dosage: 1000 MILLIGRAM, QD
     Route: 048
     Dates: start: 2014

REACTIONS (2)
  - Drug interaction [Unknown]
  - Priapism [Recovered/Resolved]

NARRATIVE: CASE EVENT DATE: 20150605
